FAERS Safety Report 18975530 (Version 2)
Quarter: 2021Q2

REPORT INFORMATION
  Report Type: Spontaneous
  Country: DE (occurrence: DE)
  Receive Date: 20210305
  Receipt Date: 20210514
  Transmission Date: 20210717
  Serious: Yes (Death, Hospitalization)
  Sender: FDA-Public Use
  Company Number: DE-VERTEX PHARMACEUTICALS-2021-003454

PATIENT
  Age: 27 Year
  Sex: Female

DRUGS (31)
  1. KALYDECO [Suspect]
     Active Substance: IVACAFTOR
     Indication: CYSTIC FIBROSIS
     Dosage: 1 TAB (IVACAFTOR 150 MG) PM
     Route: 048
     Dates: start: 20201217
  2. DRONABINOL. [Concomitant]
     Active Substance: DRONABINOL
     Dosage: UNK, TID
  3. URSOFALK [Concomitant]
     Active Substance: URSODIOL
  4. DEKRISTOL [Concomitant]
     Active Substance: CHOLECALCIFEROL
     Dosage: 2 DOSAGE FORM, QD
  5. MINOCYKLIN [Concomitant]
  6. CILASTATIN;IMIPENEM [Concomitant]
     Active Substance: CILASTATIN SODIUM\IMIPENEM
     Dosage: UNK, TID
     Route: 042
  7. OXYGEN. [Concomitant]
     Active Substance: OXYGEN
     Dosage: 24/D
  8. KREON [Concomitant]
     Active Substance: PANCRELIPASE
     Dosage: 10,000
  9. VITAMIN E [Concomitant]
     Active Substance: .ALPHA.-TOCOPHEROL
     Dosage: EVERY 2 DAYS
  10. ZINTONA [ZINGIBER OFFICINALE] [Concomitant]
     Indication: NAUSEA
  11. LINEZOLID. [Concomitant]
     Active Substance: LINEZOLID
  12. CYKLOKAPRON [Concomitant]
     Active Substance: TRANEXAMIC ACID
     Dosage: REDUCED 3X1
  13. KAFTRIO [Suspect]
     Active Substance: ELEXACAFTOR\IVACAFTOR\TEZACAFTOR
     Indication: CYSTIC FIBROSIS
     Dosage: 1 TAB (75 MG IVACAFTOR/ 50 MG TEZACAFTOR/100 MG ELEXACAFTOR) AM
     Route: 048
     Dates: start: 20201215, end: 20201218
  14. HYDROMORPHONE [Concomitant]
     Active Substance: HYDROMORPHONE
     Dosage: 4 MG, BID
  15. IODIDE [Concomitant]
     Active Substance: IODINE
     Indication: HEADACHE
     Dosage: 1 DOSAGE FORM, QD
  16. AZITHROMYCIN ANHYDROUS. [Concomitant]
     Active Substance: AZITHROMYCIN ANHYDROUS
  17. ATROVENT [Concomitant]
     Active Substance: IPRATROPIUM BROMIDE
     Dosage: UNK, TID
  18. SALBUTAMOL [Concomitant]
     Active Substance: ALBUTEROL
     Dosage: UNK, TID
  19. PANTOPRAZOLE [Concomitant]
     Active Substance: PANTOPRAZOLE
     Dosage: UNK, BID
  20. ACTRAPID [INSULIN PORCINE] [Concomitant]
     Active Substance: INSULIN PORK\INSULIN PURIFIED PORK
  21. PREDNISOLONE. [Concomitant]
     Active Substance: PREDNISOLONE
  22. KAFTRIO [Suspect]
     Active Substance: ELEXACAFTOR\IVACAFTOR\TEZACAFTOR
     Dosage: 2 TABS (75 MG IVACAFTOR /50 MG TEZACAFTOR/100 MG ELEXACAFTOR) AM
     Route: 048
     Dates: start: 20201219
  23. FERRO FOLGAMMA [Concomitant]
     Dosage: UNK, QD
  24. KREON [Concomitant]
     Active Substance: PANCRELIPASE
     Dosage: 25,000
  25. AMIKACIN. [Concomitant]
     Active Substance: AMIKACIN
  26. COTRIM FORTE [Concomitant]
     Active Substance: SULFAMETHOXAZOLE\TRIMETHOPRIM
     Dosage: UNK, BID
  27. IBUPROFEN. [Concomitant]
     Active Substance: IBUPROFEN
  28. VITAMIN A [RETINOL] [Concomitant]
     Active Substance: RETINOL
     Dosage: UNK, QD
  29. HYDROMORPHONE [Concomitant]
     Active Substance: HYDROMORPHONE
     Dosage: 2 MG, QD
  30. PALLADON [Concomitant]
     Active Substance: HYDROMORPHONE
  31. MOXIFLOXACIN [MOXIFLOXACIN HYDROCHLORIDE] [Concomitant]
     Active Substance: MOXIFLOXACIN HYDROCHLORIDE

REACTIONS (2)
  - Pulmonary haemorrhage [Unknown]
  - Haemoptysis [Fatal]

NARRATIVE: CASE EVENT DATE: 20210128
